FAERS Safety Report 4944599-5 (Version None)
Quarter: 2006Q1

REPORT INFORMATION
  Report Type: 
  Country: None (occurrence: None)
  Receive Date: 20060315
  Receipt Date: 20060303
  Transmission Date: 20060701
  Serious: Yes (Hospitalization)
  Sender: FDA-Public Use
  Company Number: US-ROCHE-439052

PATIENT
  Age: 39 Year
  Sex: Male
  Weight: 97.5 kg

DRUGS (2)
  1. PEG-INTERFERON ALFA 2A (RO 25-8310) [Suspect]
     Route: 058
     Dates: start: 20051213, end: 20060302
  2. RIBAVIRIN [Suspect]
     Route: 048
     Dates: start: 20051213, end: 20060302

REACTIONS (1)
  - DEEP VEIN THROMBOSIS [None]
